FAERS Safety Report 5237857-0 (Version None)
Quarter: 2007Q1

REPORT INFORMATION
  Report Type: 
  Country: None (occurrence: None)
  Receive Date: 20070214
  Receipt Date: 20070130
  Transmission Date: 20070707
  Serious: Yes (Other)
  Sender: FDA-Public Use
  Company Number: US-SHR-US-2006-035786

PATIENT
  Age: 55 Year
  Sex: Female
  Weight: 77.098 kg

DRUGS (15)
  1. BETASERON [Suspect]
     Indication: SECONDARY PROGRESSIVE MULTIPLE SCLEROSIS
     Dosage: 8 MIU, EVERY 2D
     Route: 058
     Dates: start: 20051115
  2. VISIPAQUE                               /USA/ [Suspect]
     Indication: COMPUTERISED TOMOGRAM
     Dates: start: 20060615
  3. TOPAMAX [Concomitant]
     Dosage: 75 MG, EVERY 12H
     Route: 048
  4. PAXIL [Concomitant]
     Indication: DEPRESSION
     Dosage: 40 MG, 1X/DAY
     Route: 048
     Dates: start: 20010201
  5. FOSAMAX [Concomitant]
     Indication: OSTEOPOROSIS
     Dosage: 10 MG, 1X/DAY
     Route: 048
     Dates: start: 20020101
  6. PROVIGIL [Concomitant]
     Indication: MULTIPLE SCLEROSIS
     Dosage: 200 MG, 1X/DAY
     Route: 048
     Dates: start: 20040101
  7. TRAZODIL [Concomitant]
     Indication: DEPRESSION
     Dosage: 100 MG, 1X/DAY
     Route: 048
  8. BACLOFEN [Concomitant]
     Indication: MULTIPLE SCLEROSIS
     Dosage: 20 MG, 3X/DAY
  9. TRILEPTAL [Concomitant]
     Indication: MULTIPLE SCLEROSIS
     Dosage: 150 MG, 1X/DAY
     Dates: start: 20060401
  10. ACIPHEX [Concomitant]
     Dosage: 20 MG, 1X/DAY
     Route: 048
  11. CALCIUM [Concomitant]
     Indication: OSTEOPOROSIS
     Dosage: 600 MG, 3X/DAY
     Route: 048
     Dates: start: 20010101
  12. VITAMIN D [Concomitant]
     Indication: OSTEOPOROSIS
     Dosage: 400 MG, 1X/DAY
     Route: 048
     Dates: start: 20010101
  13. FEMHRT [Concomitant]
     Indication: MENOPAUSE
     Dosage: 1 MG, EVERY 2D
     Route: 048
     Dates: start: 20000101
  14. EPIPEN [Concomitant]
     Dosage: UNK, AS REQ'D
     Route: 058
     Dates: start: 20050101
  15. ZYRTEC [Concomitant]
     Indication: MULTIPLE ALLERGIES
     Dosage: 10 MG, AS REQ'D
     Dates: start: 20050101

REACTIONS (23)
  - ANTIPHOSPHOLIPID ANTIBODIES POSITIVE [None]
  - BALANCE DISORDER [None]
  - CHEST DISCOMFORT [None]
  - CHEST PAIN [None]
  - COAGULATION FACTOR VIII LEVEL INCREASED [None]
  - COMPUTERISED TOMOGRAM THORAX ABNORMAL [None]
  - CONTRAST MEDIA REACTION [None]
  - COUGH [None]
  - DEEP VEIN THROMBOSIS [None]
  - DIARRHOEA [None]
  - DYSPHAGIA [None]
  - DYSPHONIA [None]
  - ERYTHEMA [None]
  - FATIGUE [None]
  - HAEMOPTYSIS [None]
  - HYPERHIDROSIS [None]
  - IRON DEFICIENCY ANAEMIA [None]
  - NAUSEA [None]
  - PERIARTHRITIS [None]
  - PRURITUS [None]
  - RASH ERYTHEMATOUS [None]
  - SWELLING FACE [None]
  - WEIGHT DECREASED [None]
